FAERS Safety Report 6047366-7 (Version None)
Quarter: 2009Q1

REPORT INFORMATION
  Report Type: 
  Country: None (occurrence: None)
  Receive Date: 20090122
  Receipt Date: 20090113
  Transmission Date: 20090719
  Serious: Yes (Death, Hospitalization)
  Sender: FDA-Public Use
  Company Number: BE-MERCK-0812BEL00010

PATIENT
  Age: 68 Year
  Sex: Male

DRUGS (2)
  1. ZOCOR [Suspect]
     Indication: HYPERCHOLESTEROLAEMIA
     Route: 048
     Dates: start: 19980101, end: 19980101
  2. ZOCOR [Suspect]
     Route: 048
     Dates: start: 20070101, end: 20070704

REACTIONS (11)
  - BLOOD CREATINE PHOSPHOKINASE INCREASED [None]
  - COMA [None]
  - DEATH [None]
  - DYSPNOEA [None]
  - FATIGUE [None]
  - HYPOXIA [None]
  - MUSCULAR WEAKNESS [None]
  - MYALGIA [None]
  - PARALYSIS [None]
  - POISONING [None]
  - SPINAL COLUMN STENOSIS [None]
